FAERS Safety Report 5218800-7 (Version None)
Quarter: 2007Q1

REPORT INFORMATION
  Report Type: 
  Country: None (occurrence: None)
  Receive Date: 20070123
  Receipt Date: 20070117
  Transmission Date: 20070707
  Serious: Yes (Death, Hospitalization, Other)
  Sender: FDA-Public Use
  Company Number: 163-21880-06121143

PATIENT
  Age: 50 Year
  Sex: Male

DRUGS (12)
  1. REVLIMID [Suspect]
     Indication: MULTIPLE MYELOMA
     Dosage: 15 MG, 1 IN 1 D, ORAL
     Route: 048
     Dates: start: 20061130, end: 20061201
  2. TMP-SMX (BACTRIM) [Concomitant]
  3. ACYCLOVIR [Concomitant]
  4. ALBUTEROL [Concomitant]
  5. DEXAMETHASONE TAB [Concomitant]
  6. ENOXAPARIN SODIUM [Concomitant]
  7. PROCRIT [Concomitant]
  8. FLUCONAZOLE [Concomitant]
  9. FLUTICASONE PROPIONATE [Concomitant]
  10. LEVOTHYROXINE SODIUM [Concomitant]
  11. PANTOPRAZOLE SODIUM [Concomitant]
  12. PAXIL [Concomitant]

REACTIONS (6)
  - MALIGNANT NEOPLASM PROGRESSION [None]
  - METABOLIC ACIDOSIS [None]
  - MULTIPLE MYELOMA [None]
  - PNEUMONIA [None]
  - PULMONARY EMBOLISM [None]
  - SEPTIC SHOCK [None]
